FAERS Safety Report 12454989 (Version 1)
Quarter: 2016Q2

REPORT INFORMATION
  Report Type: Spontaneous
  Country: GB (occurrence: None)
  Receive Date: 20160509
  Receipt Date: 20160509
  Transmission Date: 20160815
  Serious: Yes (Life-Threatening, Hospitalization, Other)
  Sender: FDA-Public Use
  Company Number: VL533042

PATIENT
  Age: 55 Year
  Sex: Female

DRUGS (8)
  1. CLONIDIN [Concomitant]
     Active Substance: CLONIDINE
  2. PLAVIX [Concomitant]
     Active Substance: CLOPIDOGREL BISULFATE
  3. BABY ASPIRIN [Concomitant]
     Active Substance: ASPIRIN
  4. CRESTOR [Concomitant]
     Active Substance: ROSUVASTATIN CALCIUM
  5. AMLODIPINE [Concomitant]
     Active Substance: AMLODIPINE BESYLATE
  6. METOPROLOL. [Concomitant]
     Active Substance: METOPROLOL
  7. NO7 BEAUTIFUL SKIN DAY NORMAL DRY SUNSCREEN BROAD SPECTRUM SPF 15 [Suspect]
     Active Substance: AVOBENZONE\OCTISALATE\OCTOCRYLENE
     Indication: DRY SKIN
     Dates: start: 20160330, end: 20160401
  8. NO7 BEAUTIFUL SKIN DAY NORMAL DRY SUNSCREEN BROAD SPECTRUM SPF 15 [Suspect]
     Active Substance: AVOBENZONE\OCTISALATE\OCTOCRYLENE
     Indication: PROPHYLAXIS AGAINST SOLAR RADIATION
     Dates: start: 20160330, end: 20160401

REACTIONS (3)
  - Application site paraesthesia [None]
  - Myocardial infarction [None]
  - Application site urticaria [None]

NARRATIVE: CASE EVENT DATE: 20160401
